FAERS Safety Report 7601430-7 (Version None)
Quarter: 2011Q3

REPORT INFORMATION
  Report Type: 
  Country: None (occurrence: None)
  Receive Date: 20110711
  Receipt Date: 20110705
  Transmission Date: 20111222
  Serious: Yes (Hospitalization)
  Sender: FDA-Public Use
  Company Number: FR-MERCK-1107FRA00020

PATIENT
  Age: 64 Year
  Sex: Male

DRUGS (5)
  1. PIRIBEDIL [Suspect]
     Route: 048
     Dates: start: 20110121, end: 20110127
  2. TOLCAPONE [Suspect]
     Indication: PARKINSON'S DISEASE
     Route: 048
     Dates: start: 20080701
  3. SINEMET [Suspect]
     Indication: PARKINSON'S DISEASE
     Route: 048
     Dates: start: 20080701, end: 20110131
  4. APOMORPHINE HYDROCHLORIDE [Suspect]
     Indication: PARKINSON'S DISEASE
     Route: 058
     Dates: start: 20080701
  5. PIRIBEDIL [Suspect]
     Indication: PARKINSON'S DISEASE
     Route: 048
     Dates: start: 20080701, end: 20110120

REACTIONS (3)
  - DELIRIUM [None]
  - AGITATION [None]
  - HALLUCINATION, AUDITORY [None]
